FAERS Safety Report 11213189 (Version 3)
Quarter: 2015Q3

REPORT INFORMATION
  Report Type: Report from Study
  Country: PL (occurrence: PL)
  Receive Date: 20150623
  Receipt Date: 20150715
  Transmission Date: 20151125
  Serious: Yes (Hospitalization, Other)
  Sender: FDA-Public Use
  Company Number: PL-ASTRAZENECA-2015SE59599

PATIENT
  Age: 20141 Day
  Sex: Male

DRUGS (10)
  1. TICAGRELOR [Suspect]
     Active Substance: TICAGRELOR
     Indication: THROMBOSIS PROPHYLAXIS
     Route: 048
     Dates: start: 20150527, end: 20150601
  2. ACETYLSALICYLIC ACID [Suspect]
     Active Substance: ASPIRIN
     Indication: THROMBOSIS PROPHYLAXIS
     Dosage: NON AZ PRODUCT 75 MG DAILY
     Route: 048
     Dates: start: 20150527
  3. BISOPROLOL [Concomitant]
     Active Substance: BISOPROLOL
     Dates: start: 20150527
  4. WARFARIN [Concomitant]
     Active Substance: WARFARIN
  5. SPIRONOLACTON [Concomitant]
     Active Substance: SPIRONOLACTONE
     Dates: start: 20150601
  6. BIVALIRUDIN. [Suspect]
     Active Substance: BIVALIRUDIN
     Dosage: 1.75 MG/KG PER HOUR
     Route: 042
     Dates: start: 20150527, end: 20150527
  7. ATORVASTATIN [Suspect]
     Active Substance: ATORVASTATIN
     Route: 048
     Dates: start: 20150527, end: 20150601
  8. RAMIPRIL. [Concomitant]
     Active Substance: RAMIPRIL
     Route: 048
     Dates: start: 20150527
  9. AMOXICILLIN CLAVULANIC ACID [Concomitant]
     Active Substance: AMOXICILLIN\CLAVULANIC ACID
     Dates: start: 20150530
  10. FUROSEMID [Concomitant]
     Active Substance: FUROSEMIDE
     Route: 042
     Dates: start: 20150601

REACTIONS (3)
  - Mitral valve disease [Recovered/Resolved with Sequelae]
  - Hepatic failure [Recovered/Resolved]
  - Pneumonia [Recovered/Resolved]

NARRATIVE: CASE EVENT DATE: 20150601
